FAERS Safety Report 13237787 (Version 1)
Quarter: 2017Q1

REPORT INFORMATION
  Report Type: Report from Study
  Country: US (occurrence: US)
  Receive Date: 20170216
  Receipt Date: 20170216
  Transmission Date: 20170428
  Serious: No
  Sender: FDA-Public Use
  Company Number: PHEH2017US004542

PATIENT
  Age: 12 Year
  Sex: Male

DRUGS (1)
  1. TOBI [Suspect]
     Active Substance: TOBRAMYCIN
     Indication: CYSTIC FIBROSIS
     Dosage: 300 MG, BID (NEBULIZED)
     Route: 065

REACTIONS (2)
  - Bacterial infection [Unknown]
  - Malaise [Unknown]

NARRATIVE: CASE EVENT DATE: 201612
